FAERS Safety Report 7582872-5 (Version None)
Quarter: 2011Q2

REPORT INFORMATION
  Report Type: 
  Country: None (occurrence: None)
  Receive Date: 20110630
  Receipt Date: 20110628
  Transmission Date: 20111010
  Serious: Yes (Other)
  Sender: FDA-Public Use
  Company Number: US-PFIZER INC-2011144269

PATIENT
  Sex: Female

DRUGS (3)
  1. CALAN [Concomitant]
     Dosage: UNK
  2. PROCARDIA [Concomitant]
     Dosage: UNK
  3. LIPITOR [Suspect]
     Indication: LOW DENSITY LIPOPROTEIN INCREASED
     Dosage: 40 MG, 1X/DAY
     Route: 048
     Dates: start: 20100701

REACTIONS (2)
  - FALL [None]
  - LOWER LIMB FRACTURE [None]
